FAERS Safety Report 13356649 (Version 4)
Quarter: 2017Q2

REPORT INFORMATION
  Report Type: Report from Study
  Country: US (occurrence: US)
  Receive Date: 20170321
  Receipt Date: 20170608
  Transmission Date: 20170830
  Serious: Yes (Hospitalization)
  Sender: FDA-Public Use
  Company Number: US-ACTELION-A-NJ2017-148498

PATIENT
  Age: 74 Year
  Sex: Female
  Weight: 82.86 kg

DRUGS (6)
  1. UPTRAVI [Suspect]
     Active Substance: SELEXIPAG
     Dosage: 1000 MCG, BID
     Route: 048
  2. ADCIRCA [Concomitant]
     Active Substance: TADALAFIL
  3. SILDENAFIL CITRATE. [Concomitant]
     Active Substance: SILDENAFIL CITRATE
  4. OPSUMIT [Suspect]
     Active Substance: MACITENTAN
     Indication: PULMONARY HYPERTENSION
     Dosage: 10 MG, QD
     Route: 048
     Dates: start: 20170112
  5. UPTRAVI [Suspect]
     Active Substance: SELEXIPAG
     Dosage: 800 MCG, BID
     Route: 048
  6. UPTRAVI [Suspect]
     Active Substance: SELEXIPAG
     Indication: PULMONARY HYPERTENSION
     Dosage: 1200 MCG, BID
     Route: 048

REACTIONS (13)
  - Diarrhoea [Unknown]
  - Fluid overload [Unknown]
  - Condition aggravated [Unknown]
  - Pain in extremity [Unknown]
  - Dyspnoea [Unknown]
  - Generalised oedema [Unknown]
  - Swelling [Unknown]
  - Fluid retention [Unknown]
  - Muscle spasms [Unknown]
  - Right ventricular failure [Unknown]
  - Underdose [Unknown]
  - Abdominal discomfort [Unknown]
  - Pulmonary hypertension [Unknown]
